FAERS Safety Report 23803699 (Version 1)
Quarter: 2024Q2

REPORT INFORMATION
  Report Type: Spontaneous
  Country: US (occurrence: None)
  Receive Date: 20240430
  Receipt Date: 20240430
  Transmission Date: 20240716
  Serious: Yes (Hospitalization)
  Sender: FDA-Public Use
  Company Number: None

PATIENT
  Age: 62 Year
  Sex: Male
  Weight: 70 kg

DRUGS (1)
  1. GEMCITABINE HCL [Suspect]
     Active Substance: GEMCITABINE HYDROCHLORIDE
     Indication: Ductal adenocarcinoma of pancreas
     Dates: start: 20191215, end: 20200319

REACTIONS (4)
  - Colitis ischaemic [None]
  - Haemolytic anaemia [None]
  - Fall [None]
  - Vein disorder [None]

NARRATIVE: CASE EVENT DATE: 20200319
